FAERS Safety Report 5620086-6 (Version None)
Quarter: 2008Q1

REPORT INFORMATION
  Report Type: 
  Country: None (occurrence: None)
  Receive Date: 20080208
  Receipt Date: 20080206
  Transmission Date: 20080703
  Serious: Yes (Hospitalization)
  Sender: FDA-Public Use
  Company Number: US-MERCK-0802USA01257

PATIENT
  Age: 67 Year
  Sex: Male

DRUGS (15)
  1. FOSAMAX [Suspect]
     Indication: OSTEOPOROSIS
     Route: 048
     Dates: start: 20060701, end: 20071001
  2. FOSAMAX [Suspect]
     Route: 048
     Dates: start: 20071201
  3. MUCINEX [Concomitant]
     Route: 065
  4. ZALUCS [Concomitant]
     Route: 065
  5. LYRICA [Concomitant]
     Route: 065
  6. MIACALCIN [Concomitant]
     Route: 065
  7. ADVAIR DISKUS 100/50 [Concomitant]
     Route: 065
  8. ASPIRIN [Concomitant]
     Route: 065
  9. VITAMINS (UNSPECIFIED) [Concomitant]
     Route: 065
  10. LISINOPRIL [Concomitant]
     Route: 048
  11. SPIRIVA [Concomitant]
     Route: 065
  12. CELEBREX [Concomitant]
     Route: 065
  13. CARDURA [Concomitant]
     Route: 065
  14. PERCOCET [Concomitant]
     Route: 065
  15. ALENDRONATE SODIUM [Suspect]
     Route: 065
     Dates: start: 20070101, end: 20070101

REACTIONS (5)
  - ARTHRALGIA [None]
  - BACK DISORDER [None]
  - FALL [None]
  - FEMORAL NERVE INJURY [None]
  - PAIN IN EXTREMITY [None]
